FAERS Safety Report 17431388 (Version 48)
Quarter: 2024Q1

REPORT INFORMATION
  Report Type: Spontaneous
  Country: US (occurrence: US)
  Receive Date: 20200218
  Receipt Date: 20240308
  Transmission Date: 20240410
  Serious: No
  Sender: FDA-Public Use
  Company Number: US-PFIZER INC-2020072404

PATIENT
  Age: 87 Year
  Sex: Female
  Weight: 56.25 kg

DRUGS (5)
  1. PREMARIN [Suspect]
     Active Substance: ESTROGENS, CONJUGATED
     Indication: Menopausal symptoms
     Dosage: 0.625 MG, 1X/DAY (TAKE ONE A DAY)
     Route: 048
  2. PREMARIN [Suspect]
     Active Substance: ESTROGENS, CONJUGATED
     Indication: Hot flush
     Dosage: 0.625 MG, CYCLIC (DAILY FOR 21 DAYS AND THEN 7 DAYS OFF)
     Route: 048
  3. LOSARTAN [Concomitant]
     Active Substance: LOSARTAN
     Indication: Blood pressure abnormal
     Dosage: 100 MG, 1X/DAY
  4. HYDRALAZINE [Concomitant]
     Active Substance: HYDRALAZINE HYDROCHLORIDE
     Indication: Blood pressure abnormal
     Dosage: 10 MG, 2X/DAY (5MG PILLS, TAKES 2 PILLS IN MORNING, 2 PILLS AT BEDTIME)
  5. ALBUTEROL [Concomitant]
     Active Substance: ALBUTEROL
     Indication: Asthma
     Dosage: UNK, AS NEEDED

REACTIONS (23)
  - Product prescribing error [Unknown]
  - Intentional product misuse [Unknown]
  - Anxiety [Unknown]
  - Productive cough [Unknown]
  - Therapeutic response unexpected [Unknown]
  - Malaise [Unknown]
  - Hypoacusis [Unknown]
  - COVID-19 [Unknown]
  - Illness [Not Recovered/Not Resolved]
  - Visual impairment [Unknown]
  - Feeling abnormal [Unknown]
  - Poor quality sleep [Not Recovered/Not Resolved]
  - Blood pressure increased [Not Recovered/Not Resolved]
  - Body height decreased [Unknown]
  - Abdominal hernia [Unknown]
  - Hyperhidrosis [Unknown]
  - Feeling cold [Unknown]
  - Weight decreased [Unknown]
  - Fall [Unknown]
  - Nervousness [Unknown]
  - Injury [Unknown]
  - Memory impairment [Unknown]
  - Cognitive disorder [Unknown]

NARRATIVE: CASE EVENT DATE: 20220428
